FAERS Safety Report 12173933 (Version 1)
Quarter: 2016Q1

REPORT INFORMATION
  Report Type: Spontaneous
  Country: GB (occurrence: GB)
  Receive Date: 20160314
  Receipt Date: 20160314
  Transmission Date: 20160526
  Serious: Yes (Other)
  Sender: FDA-Public Use
  Company Number: GB-AUROBINDO-AUR-APL-2016-03157

PATIENT
  Age: 13 Year

DRUGS (1)
  1. FLECAINIDE 100 MG [Suspect]
     Active Substance: FLECAINIDE
     Indication: WOLFF-PARKINSON-WHITE SYNDROME
     Dosage: 100 MG, TWO TIMES A DAY
     Route: 048
     Dates: start: 20160204

REACTIONS (2)
  - Arthralgia [Unknown]
  - Oedema peripheral [Unknown]
